FAERS Safety Report 5744700-X (Version None)
Quarter: 2008Q2

REPORT INFORMATION
  Report Type: 
  Country: None (occurrence: None)
  Receive Date: 20080520
  Receipt Date: 20080512
  Transmission Date: 20081010
  Serious: Yes (Death)
  Sender: FDA-Public Use
  Company Number: DE-GENENTECH-260993

PATIENT
  Age: 85 Year
  Sex: Male

DRUGS (2)
  1. LUCENTIS [Suspect]
     Indication: MACULAR DEGENERATION
     Route: 031
  2. AVASTIN [Suspect]
     Indication: MACULAR DEGENERATION
     Route: 031

REACTIONS (1)
  - CARDIAC FAILURE [None]
